FAERS Safety Report 10372671 (Version 2)
Quarter: 2014Q3

REPORT INFORMATION
  Report Type: Spontaneous
  Country: US (occurrence: US)
  Receive Date: 20140808
  Receipt Date: 20140808
  Transmission Date: 20150326
  Serious: No
  Sender: FDA-Public Use
  Company Number: US-BRISTOL-MYERS SQUIBB COMPANY-19215961

PATIENT
  Age: 37 Year
  Sex: Male
  Weight: 82.99 kg

DRUGS (3)
  1. FENOFIBRATE. [Concomitant]
     Active Substance: FENOFIBRATE
  2. SPRYCEL [Suspect]
     Active Substance: DASATINIB
     Dates: start: 20130420
  3. CLINDAMYCIN [Suspect]
     Active Substance: CLINDAMYCIN\CLINDAMYCIN PHOSPHATE

REACTIONS (3)
  - Rash pruritic [Unknown]
  - Toothache [Unknown]
  - Eye swelling [Unknown]

NARRATIVE: CASE EVENT DATE: 20130819
